FAERS Safety Report 8342260-0 (Version None)
Quarter: 2012Q2

REPORT INFORMATION
  Report Type: 
  Country: None (occurrence: None)
  Receive Date: 20120507
  Receipt Date: 20120425
  Transmission Date: 20120825
  Serious: Yes (Hospitalization, Other)
  Sender: FDA-Public Use
  Company Number: JP-ELI_LILLY_AND_COMPANY-JP201202004571

PATIENT
  Sex: Female

DRUGS (5)
  1. METFORMIN HYDROCHLORIDE [Concomitant]
     Indication: DIABETES MELLITUS
     Dosage: UNK
     Route: 048
  2. BYETTA [Suspect]
     Dosage: 5 UG, BID
     Route: 058
     Dates: start: 20110901, end: 20111101
  3. BYETTA [Suspect]
     Indication: DIABETES MELLITUS
     Dosage: 5 UG, BID
     Route: 058
     Dates: start: 20110401, end: 20110901
  4. BYETTA [Suspect]
     Dosage: 10 UG, BID
     Route: 058
     Dates: start: 20110901, end: 20110901
  5. MIGLITOL [Concomitant]
     Indication: DIABETES MELLITUS
     Dosage: UNK
     Route: 048
     Dates: start: 20110401

REACTIONS (4)
  - PANCREATIC CARCINOMA [None]
  - GASTROINTESTINAL DISORDER [None]
  - CALCULUS URINARY [None]
  - INTRADUCTAL PAPILLARY MUCINOUS NEOPLASM [None]
